FAERS Safety Report 7534186-7 (Version None)
Quarter: 2011Q2

REPORT INFORMATION
  Report Type: 
  Country: None (occurrence: None)
  Receive Date: 20110608
  Receipt Date: 20061123
  Transmission Date: 20111010
  Serious: Yes (Other)
  Sender: FDA-Public Use
  Company Number: PHMT2006CA02090

PATIENT
  Sex: Female

DRUGS (2)
  1. DIOVAN HCT [Suspect]
     Dosage: 160MG/12.5MG
     Route: 048
     Dates: start: 20030722, end: 20040901
  2. DIOVAN HCT [Suspect]
     Dosage: 160MG/12.5MG
     Route: 048
     Dates: start: 20041101, end: 20060801

REACTIONS (4)
  - HEPATIC STEATOSIS [None]
  - LIVER INJURY [None]
  - LIVER FUNCTION TEST ABNORMAL [None]
  - VISION BLURRED [None]
